FAERS Safety Report 8391883-1 (Version None)
Quarter: 2012Q2

REPORT INFORMATION
  Report Type: 
  Country: None (occurrence: None)
  Receive Date: 20120529
  Receipt Date: 20120524
  Transmission Date: 20120825
  Serious: Yes (Other)
  Sender: FDA-Public Use
  Company Number: CA-GLAXOSMITHKLINE-A0978809A

PATIENT
  Sex: Male

DRUGS (2)
  1. TAMSULOSIN HCL [Concomitant]
  2. AVODART [Suspect]
     Indication: BENIGN PROSTATIC HYPERPLASIA
     Dosage: 1U PER DAY
     Route: 065
     Dates: start: 20120501

REACTIONS (1)
  - SPERM CONCENTRATION ZERO [None]
